FAERS Safety Report 5722131-6 (Version None)
Quarter: 2008Q2

REPORT INFORMATION
  Report Type: 
  Country: None (occurrence: None)
  Receive Date: 20080429
  Receipt Date: 20070524
  Transmission Date: 20081010
  Serious: No
  Sender: FDA-Public Use
  Company Number: US-ASTRAZENECA-2007UW12834

PATIENT
  Age: 87 Year
  Sex: Female

DRUGS (11)
  1. NEXIUM [Suspect]
     Route: 048
  2. PYRIDIUM [Concomitant]
  3. CLARINEX [Concomitant]
  4. LASIX [Concomitant]
  5. ATENOLOL [Concomitant]
  6. TEMAZEPAM [Concomitant]
  7. NORVASC [Concomitant]
  8. SINGULAIR [Concomitant]
  9. ZOLOFT [Concomitant]
  10. ZOCOR [Concomitant]
  11. THEOPHYL CR [Concomitant]

REACTIONS (5)
  - DELIRIUM [None]
  - DIARRHOEA [None]
  - FAECES DISCOLOURED [None]
  - FATIGUE [None]
  - FREQUENT BOWEL MOVEMENTS [None]
